FAERS Safety Report 9700914 (Version 2)
Quarter: 2013Q4

REPORT INFORMATION
  Report Type: Spontaneous
  Country: AU (occurrence: None)
  Receive Date: 20131119
  Receipt Date: 20131211
  Transmission Date: 20140711
  Serious: Yes (Death)
  Sender: FDA-Public Use
  Company Number: 2013AU002822

PATIENT
  Age: 78 Year
  Sex: Female
  Weight: 60 kg

DRUGS (3)
  1. PONATINIB (AP24534) TABLET [Suspect]
     Indication: CHRONIC MYELOID LEUKAEMIA
     Route: 048
     Dates: start: 20120515
  2. THYROXINE ( LEVITHYROXINE SODIUM) [Concomitant]
  3. AMLODIPINE (AMLODIPINE MALEATE) [Concomitant]

REACTIONS (3)
  - Cerebrovascular accident [None]
  - Atrial fibrillation [None]
  - Hypothyroidism [None]
